FAERS Safety Report 9667404 (Version 2)
Quarter: 2014Q1

REPORT INFORMATION
  Report Type: Spontaneous
  Country: GB (occurrence: GB)
  Receive Date: 20131104
  Receipt Date: 20140127
  Transmission Date: 20141002
  Serious: Yes (Hospitalization, Other)
  Sender: FDA-Public Use
  Company Number: GB-BANPHARM-20131836

PATIENT
  Age: 82 Year
  Sex: Female
  Weight: 56 kg

DRUGS (13)
  1. IBUPROFEN UNKNOWN PRODUCT [Suspect]
     Indication: OSTEOARTHRITIS
     Dosage: 5%, TID,
     Route: 061
     Dates: start: 20130509
  2. ALENDRONIC ACID [Suspect]
     Indication: OSTEOPOROSIS
     Dosage: 70 MG, 1 DF, EVERY WEEK,
     Route: 048
     Dates: start: 20090930, end: 20130918
  3. ASPIRIN [Suspect]
     Indication: PROPHYLAXIS
     Dosage: 75 MG, 1 DF, QD,
     Route: 048
     Dates: start: 20010626, end: 20130918
  4. AMLODIPINE [Concomitant]
  5. ATENOLOL [Concomitant]
  6. BENDROFLUMETHIAZIDE [Concomitant]
  7. CALCICHEW D3 [Concomitant]
  8. CO-CODAMOL [Concomitant]
  9. LAXIDO [Concomitant]
  10. OPTIVE [Concomitant]
  11. PARACETAMOL [Concomitant]
  12. RAMIPRIL [Concomitant]
  13. SIMVASTATIN [Concomitant]

REACTIONS (3)
  - Gastric ulcer haemorrhage [Recovering/Resolving]
  - Melaena [Recovering/Resolving]
  - Gastrooesophageal reflux disease [Recovering/Resolving]
